FAERS Safety Report 7784754-2 (Version None)
Quarter: 2011Q3

REPORT INFORMATION
  Report Type: 
  Country: None (occurrence: None)
  Receive Date: 20110928
  Receipt Date: 20110919
  Transmission Date: 20111222
  Serious: Yes (Death, Life-Threatening, Hospitalization, Other)
  Sender: FDA-Public Use
  Company Number: FR-CEPHALON-2011005005

PATIENT
  Sex: Male
  Weight: 60 kg

DRUGS (20)
  1. ANTITHROMBOTIC AGENTS [Concomitant]
  2. ESCITALOPRAM OXALATE [Concomitant]
     Indication: HYPOKINESIA
     Dates: start: 20100901, end: 20101026
  3. PREDNISONE [Concomitant]
     Indication: MULTIPLE MYELOMA
     Dates: start: 20091029
  4. THALIDOMIDE [Concomitant]
     Indication: MULTIPLE MYELOMA
     Route: 048
     Dates: start: 20091029
  5. THALIDOMIDE [Concomitant]
     Route: 048
     Dates: start: 20100819, end: 20100929
  6. ACTIQ [Suspect]
     Route: 002
     Dates: start: 20100918, end: 20101026
  7. ACTIQ [Suspect]
     Indication: BONE PAIN
     Route: 002
     Dates: start: 20100721, end: 20100917
  8. MELPHALAN HYDROCHLORIDE [Concomitant]
     Dates: start: 20100819, end: 20100822
  9. PREDNISONE [Concomitant]
     Dates: start: 20100819, end: 20100822
  10. DURAGESIC-100 [Concomitant]
     Indication: BONE PAIN
     Dates: start: 20100721, end: 20101026
  11. REVLIMID [Concomitant]
  12. INNOHEP [Concomitant]
     Indication: ARRHYTHMIA PROPHYLAXIS
     Dates: start: 20100414, end: 20100929
  13. SYMBICORT [Concomitant]
     Indication: ASTHMA
     Dates: start: 20100415, end: 20101026
  14. DEXAMETHASONE [Concomitant]
     Indication: MULTIPLE MYELOMA
     Route: 048
     Dates: start: 20101011, end: 20101021
  15. VELCADE [Concomitant]
     Indication: MULTIPLE MYELOMA
     Route: 042
     Dates: start: 20101011, end: 20101021
  16. ATENOLOL [Concomitant]
     Dates: start: 20100304, end: 20101026
  17. MELPHALAN HYDROCHLORIDE [Concomitant]
     Indication: MULTIPLE MYELOMA
     Dates: start: 20091029
  18. ACETAMINOPHEN [Concomitant]
     Indication: BONE PAIN
     Dates: start: 20090801, end: 20101026
  19. TADENAN [Concomitant]
     Dates: start: 20100504, end: 20100926
  20. LEVOFLOXACIN [Concomitant]
     Indication: LUNG INFECTION
     Dates: start: 20100906, end: 20100916

REACTIONS (5)
  - PERFORMANCE STATUS DECREASED [None]
  - LUNG INFECTION [None]
  - BRONCHITIS [None]
  - PULMONARY HAEMORRHAGE [None]
  - MULTIPLE MYELOMA [None]
